FAERS Safety Report 7846612-4 (Version None)
Quarter: 2011Q4

REPORT INFORMATION
  Report Type: 
  Country: None (occurrence: None)
  Receive Date: 20111025
  Receipt Date: 20111011
  Transmission Date: 20120403
  Serious: Yes (Death)
  Sender: FDA-Public Use
  Company Number: PHHY2011DE92363

PATIENT
  Age: 57 Year
  Sex: Female

DRUGS (2)
  1. CYCLOSPORINE [Suspect]
     Indication: STEM CELL TRANSPLANT
     Dosage: 150 MG, DAILY
  2. METHYLPREDNISOLONE [Concomitant]
     Dosage: 128 MG,DAILY

REACTIONS (7)
  - CONJUNCTIVAL OEDEMA [None]
  - SYSTEMIC MYCOSIS [None]
  - VITREOUS DISORDER [None]
  - ASPERGILLOSIS [None]
  - EYE INFECTION FUNGAL [None]
  - PLATELET COUNT DECREASED [None]
  - PULMONARY MYCOSIS [None]
